FAERS Safety Report 17657350 (Version 3)
Quarter: 2020Q2

REPORT INFORMATION
  Report Type: Spontaneous
  Country: US (occurrence: US)
  Receive Date: 20200410
  Receipt Date: 20200513
  Transmission Date: 20200713
  Serious: Yes (Hospitalization, Other)
  Sender: FDA-Public Use
  Company Number: US-TEVA-2020-US-1220878

PATIENT
  Sex: Female

DRUGS (11)
  1. SYNRIBO [Suspect]
     Active Substance: OMACETAXINE MEPESUCCINATE
     Dosage: DOSAGE: (2.5MG/0.71ML)
     Route: 058
     Dates: start: 20200331
  2. BENICAR [Concomitant]
     Active Substance: OLMESARTAN MEDOXOMIL
     Route: 065
  3. ATORVASTATIN CALCIUM. [Concomitant]
     Active Substance: ATORVASTATIN CALCIUM
     Route: 065
  4. CRANBERRY. [Concomitant]
     Active Substance: CRANBERRY
     Route: 065
  5. OMEPRAZOLE. [Concomitant]
     Active Substance: OMEPRAZOLE
     Route: 065
  6. MULTIVITAMIN [Concomitant]
     Active Substance: VITAMINS
     Route: 065
  7. SILDENAFIL. [Concomitant]
     Active Substance: SILDENAFIL
  8. SUPER B COMPLEX [Concomitant]
     Active Substance: CYANOCOBALAMIN\DEXPANTHENOL\NIACINAMIDE\PYRIDOXINE HYDROCHLORIDE\RIBOFLAVIN 5^-PHOSPHATE SODIUM\THIAMINE HYDROCHLORIDE\VITAMIN B COMPLEX
     Route: 065
  9. GABAPENTIN. [Concomitant]
     Active Substance: GABAPENTIN
     Route: 065
  10. VITAMIN D [Concomitant]
     Active Substance: VITAMIN D NOS
     Route: 065
  11. BIOTIN [Concomitant]
     Active Substance: BIOTIN
     Route: 065

REACTIONS (4)
  - Thrombocytopenia [Unknown]
  - Somnolence [Unknown]
  - Febrile neutropenia [Unknown]
  - Neutropenia [Unknown]
